FAERS Safety Report 23118757 (Version 1)
Quarter: 2023Q4

REPORT INFORMATION
  Report Type: Spontaneous
  Country: HR (occurrence: HR)
  Receive Date: 20231028
  Receipt Date: 20231028
  Transmission Date: 20240109
  Serious: Yes (Death, Other)
  Sender: FDA-Public Use
  Company Number: HR-JNJFOC-20231061482

PATIENT

DRUGS (1)
  1. IMBRUVICA [Suspect]
     Active Substance: IBRUTINIB
     Indication: Chronic lymphocytic leukaemia
     Route: 048

REACTIONS (15)
  - Sudden death [Fatal]
  - Colon cancer [Fatal]
  - COVID-19 pneumonia [Fatal]
  - Adverse drug reaction [Unknown]
  - Acute myocardial infarction [Unknown]
  - Haematuria [Unknown]
  - Squamous cell carcinoma of head and neck [Fatal]
  - Oesophageal carcinoma [Fatal]
  - Skin haemorrhage [Unknown]
  - Pneumonia [Fatal]
  - Pancreatic carcinoma [Fatal]
  - Septic shock [Fatal]
  - Atrial fibrillation [Unknown]
  - Richter^s syndrome [Fatal]
  - Chronic lymphocytic leukaemia [Fatal]
